FAERS Safety Report 6160974-8 (Version None)
Quarter: 2009Q2

REPORT INFORMATION
  Report Type: 
  Country: None (occurrence: None)
  Receive Date: 20090420
  Receipt Date: 20090413
  Transmission Date: 20091009
  Serious: Yes (Hospitalization, Other)
  Sender: FDA-Public Use
  Company Number: US-AMGEN-QUU333322

PATIENT
  Sex: Female
  Weight: 93.1 kg

DRUGS (6)
  1. ENBREL [Suspect]
     Indication: RHEUMATOID ARTHRITIS
     Route: 058
  2. LISINOPRIL [Concomitant]
  3. NORVASC [Concomitant]
  4. ATENOLOL [Concomitant]
  5. PRILOSEC [Concomitant]
  6. INSULIN [Concomitant]

REACTIONS (5)
  - DEHYDRATION [None]
  - DIABETES MELLITUS [None]
  - HYPERTENSION [None]
  - INFLUENZA [None]
  - URINARY TRACT INFECTION [None]
